FAERS Safety Report 6077350-9 (Version None)
Quarter: 2009Q1

REPORT INFORMATION
  Report Type: 
  Country: None (occurrence: None)
  Receive Date: 20090213
  Receipt Date: 20090206
  Transmission Date: 20090719
  Serious: Yes (Other)
  Sender: FDA-Public Use
  Company Number: B0558813A

PATIENT
  Age: 56 Year
  Sex: Male
  Weight: 80 kg

DRUGS (6)
  1. LANOXIN [Suspect]
     Indication: DRUG USE FOR UNKNOWN INDICATION
     Route: 048
     Dates: start: 20090109
  2. AMOXICILLIN AND CLAVULANATE POTASSIUM [Suspect]
     Indication: SINUSITIS
     Route: 048
     Dates: start: 20090105
  3. SELOKEEN ZOC [Suspect]
     Indication: DRUG USE FOR UNKNOWN INDICATION
     Dosage: 25MG PER DAY
     Route: 048
     Dates: start: 20090105, end: 20090109
  4. FENPROCOUMON [Suspect]
     Indication: ATRIAL FIBRILLATION
     Route: 048
     Dates: start: 20090105
  5. NASONEX [Concomitant]
     Dosage: 50MCG PER DAY
     Route: 045
     Dates: start: 20080104
  6. DOXYCYCLINE [Concomitant]
     Route: 065

REACTIONS (2)
  - ANGIOEDEMA [None]
  - OEDEMA MUCOSAL [None]
